FAERS Safety Report 16052567 (Version 1)
Quarter: 2019Q1

REPORT INFORMATION
  Report Type: Report from Study
  Country: CA (occurrence: CA)
  Receive Date: 20190308
  Receipt Date: 20190308
  Transmission Date: 20190418
  Serious: Yes (Other)
  Sender: FDA-Public Use
  Company Number: CA-TEVA-2019-CA-1020031

PATIENT
  Sex: Male

DRUGS (7)
  1. TRAZODONE [Concomitant]
     Active Substance: TRAZODONE HYDROCHLORIDE
     Dosage: GIVEN TO HELP MANAGE PAIN
  2. VITAMIN D [Concomitant]
     Active Substance: CHOLECALCIFEROL
     Dosage: OTC
  3. COPAXONE [Suspect]
     Active Substance: GLATIRAMER ACETATE
     Indication: MULTIPLE SCLEROSIS
     Dosage: 40 MG/ML THRICE PER WEEK
     Route: 065
     Dates: start: 20180122, end: 2018
  4. MOTRIN [Concomitant]
     Active Substance: IBUPROFEN
     Dosage: OTC (OVER THE COUNTER) PRN (AS NEEDED)
  5. BIOTIN [Concomitant]
     Active Substance: BIOTIN
     Dosage: OTC
  6. SIV-GABAPENTIN [Concomitant]
  7. DULOXETINE. [Concomitant]
     Active Substance: DULOXETINE
     Indication: PAIN

REACTIONS (5)
  - Immediate post-injection reaction [Unknown]
  - Throat tightness [Unknown]
  - Feeling abnormal [Unknown]
  - Anaphylactic reaction [Unknown]
  - Flushing [Unknown]
